FAERS Safety Report 8256861-1 (Version None)
Quarter: 2012Q1

REPORT INFORMATION
  Report Type: 
  Country: None (occurrence: None)
  Receive Date: 20120330
  Receipt Date: 20120330
  Transmission Date: 20120608
  Serious: Yes (Hospitalization, Disabling)
  Sender: FDA-Public Use
  Company Number: None

PATIENT
  Age: 78 Year
  Sex: Female
  Weight: 71.6683 kg

DRUGS (1)
  1. PHENOBARBITAL TAB [Suspect]
     Dosage: 60 TO 100MG 1X IN PM
     Dates: start: 19960101, end: 20110501

REACTIONS (7)
  - FACIAL BONES FRACTURE [None]
  - LOWER LIMB FRACTURE [None]
  - HIP FRACTURE [None]
  - FEMUR FRACTURE [None]
  - FALL [None]
  - CONTUSION [None]
  - RIB FRACTURE [None]
